FAERS Safety Report 5760246-7 (Version None)
Quarter: 2008Q2

REPORT INFORMATION
  Report Type: 
  Country: None (occurrence: None)
  Receive Date: 20080602
  Receipt Date: 20080519
  Transmission Date: 20081010
  Serious: Yes (Other)
  Sender: FDA-Public Use
  Company Number: 2008013277

PATIENT
  Age: 67 Year
  Weight: 76.2043 kg

DRUGS (1)
  1. ROGAINE [Suspect]
     Indication: ALOPECIA
     Dosage: 1 ML 1-2 TIMES A DAY; TOPICAL
     Route: 061
     Dates: start: 20080101, end: 20080510

REACTIONS (1)
  - HYPOAESTHESIA [None]
